FAERS Safety Report 15098895 (Version 1)
Quarter: 2018Q3

REPORT INFORMATION
  Report Type: Spontaneous
  Country: US (occurrence: US)
  Receive Date: 20180702
  Receipt Date: 20180702
  Transmission Date: 20181010
  Serious: Yes (Death)
  Sender: FDA-Public Use
  Company Number: US-PFIZER INC-2018262741

PATIENT
  Age: 84 Year
  Sex: Male

DRUGS (1)
  1. XELJANZ XR [Suspect]
     Active Substance: TOFACITINIB CITRATE
     Indication: RHEUMATOID ARTHRITIS
     Dosage: 11 MG, 1X/DAY
     Dates: end: 201712

REACTIONS (3)
  - Infection [Unknown]
  - Death [Fatal]
  - Chronic obstructive pulmonary disease [Unknown]

NARRATIVE: CASE EVENT DATE: 20180512
